FAERS Safety Report 5107756-3 (Version None)
Quarter: 2006Q3

REPORT INFORMATION
  Report Type: 
  Country: None (occurrence: None)
  Receive Date: 20060919
  Receipt Date: 20060713
  Transmission Date: 20061208
  Serious: Yes (Hospitalization)
  Sender: FDA-Public Use
  Company Number: US-AVENTIS-200615850US

PATIENT
  Sex: Female

DRUGS (1)
  1. DDAVP [Suspect]
     Indication: POLLAKIURIA
     Route: 048
     Dates: start: 20060623

REACTIONS (4)
  - CONVULSION [None]
  - HAEMATOCRIT DECREASED [None]
  - HAEMOGLOBIN DECREASED [None]
  - UPPER LIMB FRACTURE [None]
